FAERS Safety Report 11707957 (Version 1)
Quarter: 2015Q4

REPORT INFORMATION
  Report Type: Spontaneous
  Country: US (occurrence: US)
  Receive Date: 20151104
  Receipt Date: 20151104
  Transmission Date: 20160304
  Serious: No
  Sender: FDA-Public Use
  Company Number: US-ELI_LILLY_AND_COMPANY-US201103008960

PATIENT
  Age: 81 Year
  Sex: Female

DRUGS (4)
  1. FORTEO [Suspect]
     Active Substance: TERIPARATIDE
     Dosage: 20 UG, QD
  2. FORTEO [Suspect]
     Active Substance: TERIPARATIDE
     Indication: OSTEOPOROSIS
     Dosage: 20 UG, QD
     Dates: start: 20110326
  3. FORTEO [Suspect]
     Active Substance: TERIPARATIDE
     Dosage: 20 UG, QD
  4. ESTROGEN NOS [Concomitant]
     Active Substance: ESTROGENS

REACTIONS (7)
  - Blood pressure abnormal [Unknown]
  - Gait disturbance [Unknown]
  - Posture abnormal [Unknown]
  - Injection site haemorrhage [Unknown]
  - Heart rate increased [Recovering/Resolving]
  - Balance disorder [Not Recovered/Not Resolved]
  - Spinal deformity [Unknown]

NARRATIVE: CASE EVENT DATE: 20110326
